FAERS Safety Report 15386869 (Version 1)
Quarter: 2018Q3

REPORT INFORMATION
  Report Type: Spontaneous
  Country: JP (occurrence: JP)
  Receive Date: 20180914
  Receipt Date: 20180914
  Transmission Date: 20181010
  Serious: Yes (Hospitalization)
  Sender: FDA-Public Use
  Company Number: JP-PFIZER INC-2018369214

PATIENT
  Age: 50 Year
  Sex: Female

DRUGS (4)
  1. MUCOSTA [Concomitant]
     Active Substance: REBAMIPIDE
  2. LYRICA [Suspect]
     Active Substance: PREGABALIN
     Route: 048
  3. HYPEN [ETODOLAC] [Concomitant]
     Active Substance: ETODOLAC
  4. METHYCOBAL [Concomitant]
     Active Substance: METHYLCOBALAMIN

REACTIONS (1)
  - Hepatic function abnormal [Unknown]
